FAERS Safety Report 7331659-7 (Version None)
Quarter: 2011Q1

REPORT INFORMATION
  Report Type: 
  Country: None (occurrence: None)
  Receive Date: 20110304
  Receipt Date: 20110221
  Transmission Date: 20110831
  Serious: Yes (Other)
  Sender: FDA-Public Use
  Company Number: DE-JNJFOC-20101208740

PATIENT
  Age: 56 Year
  Sex: Female

DRUGS (1)
  1. SIMPONI [Suspect]
     Indication: ILL-DEFINED DISORDER
     Route: 058

REACTIONS (2)
  - PANCREATITIS [None]
  - BLOOD TEST ABNORMAL [None]
